FAERS Safety Report 13305834 (Version 2)
Quarter: 2020Q1

REPORT INFORMATION
  Report Type: Report from Study
  Country: US (occurrence: US)
  Receive Date: 20170308
  Receipt Date: 20200305
  Transmission Date: 20200409
  Serious: Yes (Other)
  Sender: FDA-Public Use
  Company Number: US-MUNDIPHARMA DS AND PHARMACOVIGILANCE-USA-2017-0136997

PATIENT
  Sex: Male

DRUGS (4)
  1. OXYCODONE HYDROCHLORIDE. [Suspect]
     Active Substance: OXYCODONE HYDROCHLORIDE
     Dosage: 80 MG, QID
     Route: 048
     Dates: start: 19970301
  2. OXYCODONE HYDROCHLORIDE. [Suspect]
     Active Substance: OXYCODONE HYDROCHLORIDE
     Indication: OSTEOARTHRITIS
     Dosage: 40 MG, QID
     Route: 048
  3. OXYCODONE HYDROCHLORIDE. [Suspect]
     Active Substance: OXYCODONE HYDROCHLORIDE
     Indication: PAIN
     Dosage: 60 MG, BID
     Route: 048
  4. OXYCODONE HYDROCHLORIDE. [Suspect]
     Active Substance: OXYCODONE HYDROCHLORIDE
     Dosage: 80 MG, 2 IN AM, 1 40 MG AT NOON, 1 80 MG AT NIGHT
     Route: 048

REACTIONS (15)
  - Procedural complication [Unknown]
  - Vomiting [Recovered/Resolved]
  - Unevaluable event [Recovered/Resolved]
  - Multiple fractures [Unknown]
  - Pain [Unknown]
  - Tremor [Not Recovered/Not Resolved]
  - Food poisoning [Unknown]
  - Fall [Unknown]
  - Blood pressure increased [Unknown]
  - Nausea [Recovered/Resolved]
  - Pneumothorax [Unknown]
  - Drug withdrawal syndrome [Recovered/Resolved]
  - Drug ineffective [Recovered/Resolved]
  - Drug dependence [Recovered/Resolved]
  - Off label use [Recovered/Resolved]

NARRATIVE: CASE EVENT DATE: 1997
